FAERS Safety Report 24202653 (Version 5)
Quarter: 2024Q4

REPORT INFORMATION
  Report Type: Report from Study
  Country: US (occurrence: US)
  Receive Date: 20240813
  Receipt Date: 20241129
  Transmission Date: 20250114
  Serious: No
  Sender: ACADIA PHARMACEUTICALS
  Company Number: US-ACADIA PHARMACEUTICALS INC.-ACA-2024-TRF-003782

PATIENT
  Sex: Female

DRUGS (1)
  1. DAYBUE [Suspect]
     Active Substance: TROFINETIDE
     Indication: Rett syndrome
     Dosage: 30 MILLILITER, QD
     Route: 048
     Dates: end: 202408

REACTIONS (10)
  - Abdominal pain [Recovering/Resolving]
  - Hypophagia [Not Recovered/Not Resolved]
  - Malaise [Not Recovered/Not Resolved]
  - Product use complaint [Recovering/Resolving]
  - Confusional state [Recovering/Resolving]
  - Nausea [Recovered/Resolved]
  - Inappropriate schedule of product administration [Not Recovered/Not Resolved]
  - Intentional dose omission [Unknown]
  - Vomiting [Recovered/Resolved]
  - Diarrhoea [Recovered/Resolved]
